FAERS Safety Report 6906240-1 (Version None)
Quarter: 2010Q3

REPORT INFORMATION
  Report Type: 
  Country: None (occurrence: None)
  Receive Date: 20100803
  Receipt Date: 20100803
  Transmission Date: 20110219
  Serious: Yes (Hospitalization)
  Sender: FDA-Public Use
  Company Number: None

PATIENT
  Sex: Female
  Weight: 96.2 kg

DRUGS (14)
  1. CYTARABINE [Suspect]
     Dosage: 2432 MG
     Dates: end: 20100710
  2. ETOPOSIDE [Suspect]
     Dosage: 16640 MG
     Dates: end: 20100710
  3. ACYCLOVIR [Concomitant]
  4. AMITRIPTYLINE HYDROCHLORIDE [Suspect]
  5. CIPROFLOXACIN [Concomitant]
  6. CYMBALTA [Concomitant]
  7. FLUCONAZOLE [Concomitant]
  8. FLUTICASONE PROPIONATE [Concomitant]
  9. FLUTICASONE PROPIONATE [Concomitant]
  10. LORAZEPAM [Concomitant]
  11. METOPROLOL TARTRATE [Concomitant]
  12. SODIUM CHLORIDE 0.9% [Concomitant]
  13. SPIRONOLACTONE [Suspect]
  14. ZOFRAN [Concomitant]

REACTIONS (6)
  - ANTIBIOTIC RESISTANT STAPHYLOCOCCUS TEST POSITIVE [None]
  - BLOOD URINE PRESENT [None]
  - CULTURE URINE POSITIVE [None]
  - NEUTROPENIA [None]
  - PYREXIA [None]
  - THROMBOCYTOPENIA [None]
